FAERS Safety Report 24373355 (Version 2)
Quarter: 2024Q4

REPORT INFORMATION
  Report Type: Report from Study
  Country: US (occurrence: US)
  Receive Date: 20240927
  Receipt Date: 20241005
  Transmission Date: 20250115
  Serious: Yes (Other)
  Sender: ABBVIE
  Company Number: US-ABBVIE-5936675

PATIENT
  Age: 84 Year
  Sex: Female

DRUGS (2)
  1. DUOPA [Suspect]
     Active Substance: CARBIDOPA\LEVODOPA
     Indication: Parkinson^s disease
     Route: 050
     Dates: start: 20190619, end: 20240921
  2. DUOPA [Suspect]
     Active Substance: CARBIDOPA\LEVODOPA

REACTIONS (10)
  - Oesophageal obstruction [Recovering/Resolving]
  - Catatonia [Recovering/Resolving]
  - Gingival discolouration [Recovering/Resolving]
  - Communication disorder [Recovering/Resolving]
  - Salivary hyposecretion [Recovering/Resolving]
  - Weight gain poor [Unknown]
  - Intentional medical device removal by patient [Not Recovered/Not Resolved]
  - Device kink [Not Recovered/Not Resolved]
  - Tooth extraction [Unknown]
  - Stoma site discharge [Unknown]

NARRATIVE: CASE EVENT DATE: 20240601
